FAERS Safety Report 9801644 (Version 2)
Quarter: 2014Q1

REPORT INFORMATION
  Report Type: Report from Study
  Country: US (occurrence: US)
  Receive Date: 20140107
  Receipt Date: 20140107
  Transmission Date: 20141002
  Serious: Yes (Other)
  Sender: FDA-Public Use
  Company Number: US-BRISTOL-MYERS SQUIBB COMPANY-16143398

PATIENT
  Age: 44 Year
  Sex: Male

DRUGS (8)
  1. IPILIMUMAB [Suspect]
     Indication: MALIGNANT MELANOMA
     Route: 042
     Dates: start: 20110315, end: 20110907
  2. CITALOPRAM [Concomitant]
     Dosage: TAB
     Route: 048
  3. HYDROCORTISONE [Concomitant]
     Dosage: 10MG TAB
     Route: 048
  4. MULTIVITAMIN [Concomitant]
     Dosage: TAB
     Route: 048
  5. SIMVASTATIN [Concomitant]
     Dosage: TAB
     Route: 048
  6. SYNTHROID [Concomitant]
     Route: 048
  7. TESTIM [Concomitant]
     Route: 061
  8. VITAMIN D3 [Concomitant]
     Dosage: TAB?1DF:1000 UNITS
     Route: 048

REACTIONS (1)
  - Deafness unilateral [Recovered/Resolved with Sequelae]
